FAERS Safety Report 18578617 (Version 1)
Quarter: 2020Q4

REPORT INFORMATION
  Report Type: Spontaneous
  Country: GB (occurrence: GB)
  Receive Date: 20201204
  Receipt Date: 20201204
  Transmission Date: 20210114
  Serious: Yes (Hospitalization)
  Sender: FDA-Public Use
  Company Number: GB-TEVA-2020-GB-1854595

PATIENT
  Age: 69 Year
  Sex: Male
  Weight: 122 kg

DRUGS (9)
  1. FLUCONAZOLE. [Suspect]
     Active Substance: FLUCONAZOLE
     Dosage: STAT, DOSE: 150 MG
     Route: 048
  2. RIVAROXABAN [Suspect]
     Active Substance: RIVAROXABAN
     Indication: PULMONARY EMBOLISM
     Dosage: DOSE:30 MG
     Route: 048
     Dates: start: 20200911
  3. AMLODIPINE [Concomitant]
     Active Substance: AMLODIPINE BESYLATE
  4. IBUPROFEN. [Suspect]
     Active Substance: IBUPROFEN
     Indication: PAIN IN EXTREMITY
     Dosage: APPLY, DOSE: 3 DOSAGE FORMS
     Route: 061
     Dates: start: 20200910
  5. ALOGLIPTIN. [Concomitant]
     Active Substance: ALOGLIPTIN
  6. NAPROXEN. [Suspect]
     Active Substance: NAPROXEN
     Indication: PAIN IN EXTREMITY
     Dosage: UNCLEAR. OCCASIONAL, UNIT DOSE: 500 MG
     Route: 048
     Dates: start: 20200910, end: 20201002
  7. GLICLAZIDE [Concomitant]
     Active Substance: GLICLAZIDE
  8. EMPAGLIFLOZIN [Concomitant]
     Active Substance: EMPAGLIFLOZIN
  9. LOSARTAN POTASSIUM. [Concomitant]
     Active Substance: LOSARTAN POTASSIUM

REACTIONS (1)
  - Application site haematoma [Recovering/Resolving]

NARRATIVE: CASE EVENT DATE: 20200921
